FAERS Safety Report 18654470 (Version 1)
Quarter: 2020Q4

REPORT INFORMATION
  Report Type: Report from Study
  Country: NO (occurrence: NO)
  Receive Date: 20201223
  Receipt Date: 20201223
  Transmission Date: 20210114
  Serious: Yes (Hospitalization, Other)
  Sender: FDA-Public Use
  Company Number: NO-ELI_LILLY_AND_COMPANY-NO202012011232

PATIENT
  Age: 68 Year
  Sex: Male

DRUGS (5)
  1. CISPLATIN. [Concomitant]
     Active Substance: CISPLATIN
     Indication: CHOLANGIOCARCINOMA
     Dosage: 25 MG/M2, CYCLICAL
     Route: 065
     Dates: start: 201802
  2. FIMAPORFIN. [Concomitant]
     Active Substance: FIMAPORFIN
     Dosage: 0.25 UNK
     Route: 065
  3. GEMCITABINE HYDROCHLORIDE. [Suspect]
     Active Substance: GEMCITABINE HYDROCHLORIDE
     Indication: CHOLANGIOCARCINOMA
     Dosage: 1000 MG/M2, CYCLICAL
     Route: 065
     Dates: start: 201802, end: 201805
  4. GEMCITABINE HYDROCHLORIDE. [Suspect]
     Active Substance: GEMCITABINE HYDROCHLORIDE
     Dosage: 1000 MG/M2, CYCLICAL
     Route: 065
     Dates: start: 201806
  5. FIMAPORFIN. [Concomitant]
     Active Substance: FIMAPORFIN
     Indication: CHOLANGIOCARCINOMA
     Dosage: 0.25 MG/KG, UNKNOWN
     Route: 065
     Dates: start: 201806

REACTIONS (5)
  - Cholangitis [Unknown]
  - Ascites [Unknown]
  - Renal impairment [Unknown]
  - Cholangitis [Unknown]
  - Malignant neoplasm progression [Unknown]

NARRATIVE: CASE EVENT DATE: 2018
